FAERS Safety Report 7913195-X (Version None)
Quarter: 2011Q4

REPORT INFORMATION
  Report Type: 
  Country: None (occurrence: None)
  Receive Date: 20111114
  Receipt Date: 20111103
  Transmission Date: 20120403
  Serious: Yes (Hospitalization, Other)
  Sender: FDA-Public Use
  Company Number: PHHY2011DK61293

PATIENT
  Sex: Female

DRUGS (10)
  1. XELODA [Suspect]
     Route: 048
     Dates: start: 20060623, end: 20060712
  2. XELODA [Suspect]
     Route: 048
     Dates: start: 20060531, end: 20060622
  3. OXALIPLATIN [Suspect]
     Dates: start: 20060531
  4. XELODA [Suspect]
     Route: 048
     Dates: start: 20060531
  5. OXALIPLATIN [Suspect]
     Route: 042
     Dates: start: 20060623, end: 20060712
  6. OXALIPLATIN [Suspect]
     Route: 042
     Dates: start: 20060531, end: 20060622
  7. OXALIPLATIN [Suspect]
     Indication: COLON CANCER
     Dosage: 203 MG, UNK
     Route: 042
     Dates: start: 20060406
  8. XELODA [Suspect]
     Route: 048
     Dates: start: 20060406, end: 20060530
  9. OXALIPLATIN [Suspect]
     Dosage: 203 MG, UNK
     Route: 042
     Dates: start: 20060406, end: 20060530
  10. XELODA [Suspect]
     Indication: COLON CANCER
     Dosage: 1500 MG, UNK
     Route: 048
     Dates: start: 20060406

REACTIONS (10)
  - DENTAL CARIES [None]
  - DIARRHOEA [None]
  - NEUROPATHY PERIPHERAL [None]
  - MALAISE [None]
  - ADRENAL MASS [None]
  - METASTASES TO LIVER [None]
  - NAUSEA [None]
  - TOOTH LOSS [None]
  - GENERAL PHYSICAL HEALTH DETERIORATION [None]
  - TOOTH EROSION [None]
